FAERS Safety Report 6765843-8 (Version None)
Quarter: 2010Q2

REPORT INFORMATION
  Report Type: 
  Country: None (occurrence: None)
  Receive Date: 20100611
  Receipt Date: 20100531
  Transmission Date: 20101027
  Serious: Yes (Other)
  Sender: FDA-Public Use
  Company Number: PHHY2010FR27837

PATIENT
  Sex: Female
  Weight: 51 kg

DRUGS (5)
  1. CERTICAN [Suspect]
     Indication: RENAL TRANSPLANT
     Dosage: 2 MG/DAY
     Route: 048
     Dates: start: 20091113, end: 20091218
  2. CERTICAN [Suspect]
     Dosage: 3 MG/DAY
     Route: 048
     Dates: start: 20091218
  3. CELLCEPT [Concomitant]
     Dosage: UNK
     Route: 048
     Dates: start: 20081216, end: 20090410
  4. PROGRAF [Concomitant]
     Dosage: UNK
     Route: 048
     Dates: start: 20081216, end: 20091218
  5. CORTICOSTEROIDS [Concomitant]
     Dosage: UNK
     Route: 048
     Dates: start: 20081216, end: 20090206

REACTIONS (3)
  - CONDITION AGGRAVATED [None]
  - DYSPNOEA [None]
  - INTERSTITIAL LUNG DISEASE [None]
